FAERS Safety Report 8282190-6 (Version None)
Quarter: 2012Q2

REPORT INFORMATION
  Report Type: 
  Country: None (occurrence: None)
  Receive Date: 20120413
  Receipt Date: 20120403
  Transmission Date: 20120825
  Serious: Yes (Hospitalization, Other)
  Sender: FDA-Public Use
  Company Number: FR-BRISTOL-MYERS SQUIBB COMPANY-16504607

PATIENT
  Age: 85 Year
  Sex: Female

DRUGS (7)
  1. TEMAZEPAM [Concomitant]
     Route: 048
     Dates: start: 20120228, end: 20120301
  2. ACETAMINOPHEN AND TRAMADOL HCL [Concomitant]
     Dates: start: 20120301
  3. COUMADIN [Suspect]
     Indication: ATRIAL FIBRILLATION
     Dosage: 4 MG/D ALTERNATING WITH 3 MG/D EVERY OTHER DAY ORALLY FOR 6 MONTHS
     Dates: start: 20110901, end: 20120302
  4. ACETAMINOPHEN W/ CODEINE [Suspect]
     Dates: start: 20120228, end: 20120301
  5. COLTRAMYL [Concomitant]
     Dates: start: 20120226, end: 20120301
  6. SOTALOL HCL [Concomitant]
     Dates: start: 20111101
  7. KETOPROFEN [Concomitant]
     Dates: start: 20120226, end: 20120301

REACTIONS (5)
  - HAEMORRHAGIC ANAEMIA [None]
  - FALL [None]
  - INTERVERTEBRAL DISCITIS [None]
  - INTERNATIONAL NORMALISED RATIO INCREASED [None]
  - GASTROINTESTINAL HAEMORRHAGE [None]
